FAERS Safety Report 25888820 (Version 1)
Quarter: 2025Q4

REPORT INFORMATION
  Report Type: Report from Study
  Country: EU (occurrence: EU)
  Receive Date: 20251007
  Receipt Date: 20251007
  Transmission Date: 20260117
  Serious: Yes (Hospitalization)
  Sender: ROCHE
  Company Number: EU-ROCHE-10000223964

PATIENT
  Age: 70 Year
  Sex: Male

DRUGS (40)
  1. POLATUZUMAB VEDOTIN [Suspect]
     Active Substance: POLATUZUMAB VEDOTIN
     Indication: Diffuse large B-cell lymphoma
     Route: 042
     Dates: start: 20241119
  2. POLATUZUMAB VEDOTIN [Suspect]
     Active Substance: POLATUZUMAB VEDOTIN
     Route: 042
     Dates: start: 20250207
  3. RITUXIMAB [Suspect]
     Active Substance: RITUXIMAB
     Indication: Diffuse large B-cell lymphoma
     Route: 042
     Dates: start: 20241119
  4. RITUXIMAB [Suspect]
     Active Substance: RITUXIMAB
     Route: 042
     Dates: start: 20250207
  5. CYCLOPHOSPHAMIDE [Suspect]
     Active Substance: CYCLOPHOSPHAMIDE
     Indication: Diffuse large B-cell lymphoma
     Route: 042
     Dates: start: 20241119
  6. CYCLOPHOSPHAMIDE [Suspect]
     Active Substance: CYCLOPHOSPHAMIDE
     Route: 042
     Dates: start: 20250207
  7. DOXORUBICIN [Suspect]
     Active Substance: DOXORUBICIN
     Indication: Diffuse large B-cell lymphoma
     Route: 042
     Dates: start: 20241119
  8. DOXORUBICIN [Suspect]
     Active Substance: DOXORUBICIN
     Route: 042
     Dates: start: 20250207
  9. PREDNISONE [Suspect]
     Active Substance: PREDNISONE
     Indication: Diffuse large B-cell lymphoma
     Route: 048
     Dates: start: 20241119
  10. PREDNISONE [Suspect]
     Active Substance: PREDNISONE
     Route: 048
     Dates: start: 20250211
  11. PANTOPRAZOLE [Concomitant]
     Active Substance: PANTOPRAZOLE
     Dates: start: 20241119
  12. PANTOPRAZOLE [Concomitant]
     Active Substance: PANTOPRAZOLE
     Dates: start: 20241121
  13. CHLORPHENIRAMINE [Concomitant]
     Active Substance: CHLORPHENIRAMINE
     Dates: start: 20241119
  14. ACETAMINOPHEN [Concomitant]
     Active Substance: ACETAMINOPHEN
     Dates: start: 20241119
  15. ONDANSETRON [Concomitant]
     Active Substance: ONDANSETRON
     Dates: start: 20241119
  16. ALLOPURINOL [Concomitant]
     Active Substance: ALLOPURINOL
     Route: 048
     Dates: start: 20241121
  17. Durasil [Concomitant]
     Route: 048
     Dates: start: 20241121
  18. LAMIVUDINE [Concomitant]
     Active Substance: LAMIVUDINE
     Route: 048
     Dates: start: 20241121
  19. ACYCLOVIR [Concomitant]
     Active Substance: ACYCLOVIR
     Dates: start: 20241121
  20. BACTRIM [Concomitant]
     Active Substance: SULFAMETHOXAZOLE\TRIMETHOPRIM
     Route: 048
     Dates: start: 20241121
  21. LEVOFLOXACIN [Concomitant]
     Active Substance: LEVOFLOXACIN
     Route: 048
     Dates: start: 20241126
  22. DIFLUCAN [Concomitant]
     Active Substance: FLUCONAZOLE
     Route: 048
     Dates: start: 20241126
  23. FILGRASTIM [Concomitant]
     Active Substance: FILGRASTIM
     Dates: start: 20241126
  24. ENOXAPARIN [Concomitant]
     Active Substance: ENOXAPARIN
     Dosage: DOSE 4 K/U
     Dates: start: 20241121
  25. ERYTHROPOIETIN [Concomitant]
     Active Substance: ERYTHROPOIETIN
     Dates: start: 20241121
  26. ATORVASTATIN [Concomitant]
     Active Substance: ATORVASTATIN
     Route: 048
     Dates: start: 2024
  27. IRBESARTAN [Concomitant]
     Active Substance: IRBESARTAN
     Route: 048
     Dates: start: 2024
  28. CYTARABINE [Concomitant]
     Active Substance: CYTARABINE
     Dates: start: 20241211, end: 20241211
  29. CYTARABINE [Concomitant]
     Active Substance: CYTARABINE
     Dates: start: 20241230, end: 20241230
  30. CYTARABINE [Concomitant]
     Active Substance: CYTARABINE
     Dates: start: 20250117, end: 20250117
  31. CYTARABINE [Concomitant]
     Active Substance: CYTARABINE
     Dates: start: 20250207, end: 20250207
  32. CYTARABINE [Concomitant]
     Active Substance: CYTARABINE
     Dates: start: 20241119, end: 20241119
  33. CYTARABINE [Concomitant]
     Active Substance: CYTARABINE
     Dates: start: 20250314, end: 20250314
  34. METHOTREXATE [Concomitant]
     Active Substance: METHOTREXATE
     Dates: start: 20241211, end: 20241211
  35. METHOTREXATE [Concomitant]
     Active Substance: METHOTREXATE
     Dates: start: 20250117, end: 20250117
  36. METHOTREXATE [Concomitant]
     Active Substance: METHOTREXATE
     Dates: start: 20250207, end: 20250207
  37. METHOTREXATE [Concomitant]
     Active Substance: METHOTREXATE
     Dates: start: 20241119
  38. METHOTREXATE [Concomitant]
     Active Substance: METHOTREXATE
     Dates: start: 20241230, end: 20241230
  39. METHOTREXATE [Concomitant]
     Active Substance: METHOTREXATE
     Dates: start: 20250314, end: 20250314
  40. ERYTHROPOIETIN [Concomitant]
     Active Substance: ERYTHROPOIETIN
     Dosage: DOSE 40 K/U
     Dates: start: 20250306

REACTIONS (2)
  - Anaemia [Recovered/Resolved]
  - Respiratory tract infection viral [Recovered/Resolved]

NARRATIVE: CASE EVENT DATE: 20250227
